FAERS Safety Report 4812942-3 (Version None)
Quarter: 2005Q4

REPORT INFORMATION
  Report Type: 
  Country: None (occurrence: None)
  Receive Date: 20051028
  Receipt Date: 20050519
  Transmission Date: 20060501
  Serious: No
  Sender: FDA-Public Use
  Company Number: US-GLAXOSMITHKLINE-A0559350A

PATIENT
  Age: 9 Year
  Sex: Male
  Weight: 68.2 kg

DRUGS (8)
  1. ADVAIR DISKUS 100/50 [Suspect]
     Indication: ASTHMA
     Dosage: 1PUFF TWICE PER DAY
     Route: 055
     Dates: start: 20041001
  2. SINGULAIR [Concomitant]
  3. NASONEX [Concomitant]
  4. DYTAN [Concomitant]
     Route: 065
  5. ZYRTEC [Concomitant]
  6. ALBUTEROL [Concomitant]
  7. LISTERINE [Concomitant]
     Route: 048
  8. XOPENEX [Concomitant]
     Route: 065

REACTIONS (1)
  - WEIGHT INCREASED [None]
